FAERS Safety Report 16062418 (Version 3)
Quarter: 2019Q1

REPORT INFORMATION
  Report Type: Spontaneous
  Country: US (occurrence: US)
  Receive Date: 20190312
  Receipt Date: 20190314
  Transmission Date: 20190418
  Serious: Yes (Other)
  Sender: FDA-Public Use
  Company Number: US-SA-2019SA063745

PATIENT
  Sex: Female

DRUGS (4)
  1. LEMTRADA [Suspect]
     Active Substance: ALEMTUZUMAB
     Route: 041
  2. LEMTRADA [Suspect]
     Active Substance: ALEMTUZUMAB
     Dosage: UNK
     Route: 041
  3. LEMTRADA [Suspect]
     Active Substance: ALEMTUZUMAB
     Dosage: UNK
     Route: 041
  4. OCRELIZUMAB. [Suspect]
     Active Substance: OCRELIZUMAB
     Dosage: UNK

REACTIONS (1)
  - Tumefactive multiple sclerosis [Unknown]
